FAERS Safety Report 10126096 (Version 1)
Quarter: 2014Q2

REPORT INFORMATION
  Report Type: Spontaneous
  Country: US (occurrence: US)
  Receive Date: 20140427
  Receipt Date: 20140427
  Transmission Date: 20141212
  Serious: Yes (Other)
  Sender: FDA-Public Use
  Company Number: US-PFIZER INC-2014114067

PATIENT
  Age: 56 Year
  Sex: Male
  Weight: 77.1 kg

DRUGS (6)
  1. LYRICA [Suspect]
     Indication: PAIN IN EXTREMITY
     Dosage: UNK
     Dates: start: 2013
  2. LYRICA [Suspect]
     Dosage: 100 MG, UNK
  3. LYRICA [Suspect]
     Dosage: 200 MG, UNK
  4. LYRICA [Suspect]
     Dosage: 300 MG, UNK
  5. LYRICA [Suspect]
     Dosage: 400 MG, UNK
  6. LYRICA [Suspect]
     Dosage: UNK
     Dates: start: 20140201, end: 201404

REACTIONS (2)
  - Rash [Not Recovered/Not Resolved]
  - Urticaria [Not Recovered/Not Resolved]
